FAERS Safety Report 24048618 (Version 1)
Quarter: 2024Q3

REPORT INFORMATION
  Report Type: Spontaneous
  Country: US (occurrence: US)
  Receive Date: 20240704
  Receipt Date: 20240704
  Transmission Date: 20241017
  Serious: Yes (Other)
  Sender: HETERO
  Company Number: US-HETERO-HET2024US01774

PATIENT
  Age: 83 Year
  Sex: Male

DRUGS (2)
  1. DROXIDOPA [Suspect]
     Active Substance: DROXIDOPA
     Indication: Parkinson^s disease
     Dosage: 300 MILLIGRAM
     Route: 065
  2. DROXIDOPA [Suspect]
     Active Substance: DROXIDOPA
     Indication: Blood pressure increased

REACTIONS (3)
  - Cataract [Unknown]
  - Product substitution issue [Unknown]
  - Therapeutic response changed [Unknown]
